FAERS Safety Report 5630656-7 (Version None)
Quarter: 2008Q1

REPORT INFORMATION
  Report Type: 
  Country: None (occurrence: None)
  Receive Date: 20080219
  Receipt Date: 20080208
  Transmission Date: 20080703
  Serious: Yes (Hospitalization)
  Sender: FDA-Public Use
  Company Number: US-ELI_LILLY_AND_COMPANY-US200802001908

PATIENT
  Sex: Female

DRUGS (1)
  1. HUMULIN 70/30 [Suspect]
     Dates: start: 19970101

REACTIONS (5)
  - ARTHRITIS [None]
  - CARDIAC FAILURE CONGESTIVE [None]
  - FALL [None]
  - PAIN [None]
  - PELVIC FRACTURE [None]
